FAERS Safety Report 8824679 (Version 4)
Quarter: 2013Q1

REPORT INFORMATION
  Report Type: Report from Study
  Country: US (occurrence: US)
  Receive Date: 20121004
  Receipt Date: 20130102
  Transmission Date: 20140127
  Serious: Yes (Other)
  Sender: FDA-Public Use
  Company Number: US-BAYER-2012-081163

PATIENT
  Age: 83 Year
  Sex: Male

DRUGS (4)
  1. NEXAVAR [Suspect]
     Indication: HEPATIC CANCER
     Dosage: 200 MG, BID
     Route: 048
     Dates: start: 20120708, end: 201208
  2. NEXAVAR [Suspect]
     Indication: HEPATIC CANCER
     Dosage: 200 MG, QD
     Route: 048
     Dates: start: 201209
  3. EXLAX [PHENOLPHTHALEIN] [Concomitant]
  4. DIURETICS [Concomitant]
     Dosage: EVERY AM
     Route: 048

REACTIONS (26)
  - Skin ulcer [Not Recovered/Not Resolved]
  - Skin discolouration [Not Recovered/Not Resolved]
  - Pruritus [Not Recovered/Not Resolved]
  - Muscular weakness [Recovering/Resolving]
  - Local swelling [Not Recovered/Not Resolved]
  - Frequent bowel movements [None]
  - Constipation [Recovering/Resolving]
  - Skin exfoliation [Not Recovered/Not Resolved]
  - Pain in extremity [Recovering/Resolving]
  - Hypersomnia [Not Recovered/Not Resolved]
  - Erythema [Recovering/Resolving]
  - Swelling face [Not Recovered/Not Resolved]
  - Blood pressure fluctuation [Not Recovered/Not Resolved]
  - Blister [Recovered/Resolved]
  - Fatigue [Not Recovered/Not Resolved]
  - Burning sensation [Recovering/Resolving]
  - Erythema [None]
  - Onychalgia [Recovering/Resolving]
  - Fatigue [Not Recovered/Not Resolved]
  - Gastrointestinal motility disorder [Recovered/Resolved]
  - Dysuria [Not Recovered/Not Resolved]
  - Pollakiuria [Not Recovered/Not Resolved]
  - Blister [Recovering/Resolving]
  - Paraesthesia [Not Recovered/Not Resolved]
  - Pain in extremity [Recovering/Resolving]
  - Oedema peripheral [Not Recovered/Not Resolved]
